FAERS Safety Report 15517474 (Version 1)
Quarter: 2018Q4

REPORT INFORMATION
  Report Type: Spontaneous
  Country: US (occurrence: US)
  Receive Date: 20181011
  Receipt Date: 20181011
  Transmission Date: 20190205
  Serious: No
  Sender: FDA-Public Use
  Company Number: None

PATIENT
  Age: 68 Year
  Sex: Male

DRUGS (15)
  1. MORPHINE SUL [Concomitant]
     Active Substance: MORPHINE SULFATE
  2. SENNA [Concomitant]
     Active Substance: SENNA LEAF\SENNOSIDES\SENNOSIDES A AND B
  3. FAMOTIDINE. [Concomitant]
     Active Substance: FAMOTIDINE
  4. IBUPROFEN. [Concomitant]
     Active Substance: IBUPROFEN
  5. HALOPERIDOL. [Concomitant]
     Active Substance: HALOPERIDOL
  6. ONDANSETRON [Concomitant]
     Active Substance: ONDANSETRON
  7. AFINITOR [Suspect]
     Active Substance: EVEROLIMUS
     Indication: RENAL CANCER
     Route: 048
     Dates: start: 201809, end: 201810
  8. AMIODARONE [Concomitant]
     Active Substance: AMIODARONE
  9. IPRATIPIUM [Concomitant]
  10. LEVALBUTEROL. [Concomitant]
     Active Substance: LEVALBUTEROL
  11. LOMOTIL [Concomitant]
     Active Substance: ATROPINE SULFATE\DIPHENOXYLATE HYDROCHLORIDE
  12. LORAZEPAM. [Concomitant]
     Active Substance: LORAZEPAM
  13. TEMAZEPAM. [Concomitant]
     Active Substance: TEMAZEPAM
  14. BISACODYL. [Concomitant]
     Active Substance: BISACODYL
  15. CEPHALEXIN. [Concomitant]
     Active Substance: CEPHALEXIN

REACTIONS (1)
  - Therapy cessation [None]

NARRATIVE: CASE EVENT DATE: 20181010
